FAERS Safety Report 5268926-7 (Version None)
Quarter: 2007Q1

REPORT INFORMATION
  Report Type: 
  Country: None (occurrence: None)
  Receive Date: 20061213
  Receipt Date: 20030630
  Transmission Date: 20070707
  Serious: Yes (Other)
  Sender: FDA-Public Use
  Company Number: 2003UW08290

PATIENT
  Age: 44 Year
  Sex: Female
  Weight: 87.9978 kg

DRUGS (4)
  1. IRESSA [Suspect]
     Indication: NON-SMALL CELL LUNG CANCER
  2. VITAMINS [Concomitant]
  3. PREDNISONE [Concomitant]
  4. ALBUTEROL [Concomitant]

REACTIONS (5)
  - ACNE [None]
  - DRY SKIN [None]
  - MICTURITION DISORDER [None]
  - MUSCULOSKELETAL DISCOMFORT [None]
  - RASH [None]
